FAERS Safety Report 10883096 (Version 1)
Quarter: 2015Q1

REPORT INFORMATION
  Report Type: Spontaneous
  Country: US (occurrence: None)
  Receive Date: 20150226
  Receipt Date: 20150226
  Transmission Date: 20150721
  Serious: Yes (Disabling)
  Sender: FDA-Public Use
  Company Number: None

PATIENT
  Age: 56 Year
  Sex: Female
  Weight: 67.13 kg

DRUGS (2)
  1. NEXIUM [Concomitant]
     Active Substance: ESOMEPRAZOLE MAGNESIUM
  2. CIPROFLOXACIN. [Suspect]
     Active Substance: CIPROFLOXACIN
     Indication: DIVERTICULITIS
     Route: 048
     Dates: start: 20120225, end: 20120302

REACTIONS (18)
  - Impaired work ability [None]
  - Muscular weakness [None]
  - Disorientation [None]
  - Fall [None]
  - Depressed level of consciousness [None]
  - Economic problem [None]
  - Depression [None]
  - Food allergy [None]
  - Dizziness [None]
  - Coeliac disease [None]
  - Burning sensation [None]
  - Tinnitus [None]
  - Allergy to chemicals [None]
  - Pain [None]
  - Insomnia [None]
  - Tendon pain [None]
  - Arthralgia [None]
  - Gastrointestinal disorder [None]

NARRATIVE: CASE EVENT DATE: 20120225
